FAERS Safety Report 18690182 (Version 3)
Quarter: 2021Q1

REPORT INFORMATION
  Report Type: Spontaneous
  Country: IT (occurrence: IT)
  Receive Date: 20201231
  Receipt Date: 20210315
  Transmission Date: 20210419
  Serious: Yes (Hospitalization, Other)
  Sender: FDA-Public Use
  Company Number: IT-OTSUKA-2020_033151

PATIENT
  Age: 19 Year
  Sex: Male

DRUGS (3)
  1. DENIBAN [Suspect]
     Active Substance: AMISULPRIDE
     Indication: SUICIDE ATTEMPT
     Dosage: 12 DF, SINGLE
     Route: 048
     Dates: start: 20201220, end: 20201220
  2. ABILIFY [Suspect]
     Active Substance: ARIPIPRAZOLE
     Indication: SUICIDE ATTEMPT
     Dosage: 28 DF, SINGLE
     Route: 048
     Dates: start: 20201220, end: 20201220
  3. VENLAFAXINE HYDROCHLORIDE. [Suspect]
     Active Substance: VENLAFAXINE HYDROCHLORIDE
     Indication: SUICIDE ATTEMPT
     Dosage: 20 DF, SINGLE
     Route: 048
     Dates: start: 20201220, end: 20201220

REACTIONS (6)
  - Suicide attempt [Recovering/Resolving]
  - Intentional overdose [Unknown]
  - Product use in unapproved indication [Unknown]
  - Metabolic acidosis [Recovering/Resolving]
  - Sopor [Recovering/Resolving]
  - Seizure [Recovering/Resolving]

NARRATIVE: CASE EVENT DATE: 20201220
